FAERS Safety Report 15151303 (Version 1)
Quarter: 2018Q3

REPORT INFORMATION
  Report Type: Spontaneous
  Country: FR (occurrence: FR)
  Receive Date: 20180716
  Receipt Date: 20180716
  Transmission Date: 20181010
  Serious: Yes (Hospitalization, Other)
  Sender: FDA-Public Use
  Company Number: PHHY2018FR041914

PATIENT
  Age: 81 Year
  Sex: Female
  Weight: 75 kg

DRUGS (10)
  1. FENOFIBRATE ALMUS [Concomitant]
     Indication: PRODUCT USED FOR UNKNOWN INDICATION
     Dosage: 1 DF, QD (IN THE EVENING, FOR 30 DAYS)
     Route: 065
  2. IXPRIM [Concomitant]
     Active Substance: ACETAMINOPHEN\TRAMADOL HYDROCHLORIDE
     Indication: PRODUCT USED FOR UNKNOWN INDICATION
     Dosage: 1 DF, BID (IN THE MORNING AND IN THE EVENING FOR 30 DAYS)
     Route: 065
  3. IDEOS [Concomitant]
     Active Substance: CALCIUM CARBONATE\CHOLECALCIFEROL
     Indication: PRODUCT USED FOR UNKNOWN INDICATION
     Dosage: 1 DF, UNK
     Route: 065
  4. CANDESARTAN CILEXETIL MYLAN [Suspect]
     Active Substance: CANDESARTAN CILEXETIL
     Indication: PRODUCT USED FOR UNKNOWN INDICATION
     Dosage: 1 DF, QD (16/12.5 MG) MYLAN
     Route: 065
  5. DAONIL [Concomitant]
     Active Substance: GLYBURIDE
     Indication: PRODUCT USED FOR UNKNOWN INDICATION
     Dosage: 1 DF, BID, FOR 30 DAYS
     Route: 065
  6. HAMAMELIS [Concomitant]
     Active Substance: HAMAMELIS VIRGINIANA LEAF
     Indication: PRODUCT USED FOR UNKNOWN INDICATION
     Dosage: 2 DF, UNK, 2 BOTTLES,
     Route: 065
  7. TROXERUTINE ALMUS [Concomitant]
     Indication: PRODUCT USED FOR UNKNOWN INDICATION
     Dosage: 1 DF, QD (MIDDAY DURING MEAL)
     Route: 065
  8. CANDESARTAN+HYDROCHLOROTHIAZIDE [Suspect]
     Active Substance: CANDESARTAN CILEXETIL\HYDROCHLOROTHIAZIDE
     Indication: PRODUCT USED FOR UNKNOWN INDICATION
     Dosage: UNK
     Route: 065
  9. BETAHISTINE HYDROCHLORIDE [Concomitant]
     Active Substance: BETAHISTINE HYDROCHLORIDE
     Indication: PRODUCT USED FOR UNKNOWN INDICATION
     Dosage: 1 DF, TID (IN THE MORNING, AT MIDDAY AND IN THE EVENING, DURING 30 DAYS)
     Route: 065
  10. OGAST [Concomitant]
     Active Substance: LANSOPRAZOLE
     Indication: PRODUCT USED FOR UNKNOWN INDICATION
     Dosage: 1 DF, QD (AT MIDDAY, FOR 30 DAYS)
     Route: 065

REACTIONS (2)
  - Hypertensive crisis [Recovering/Resolving]
  - Fall [Recovering/Resolving]

NARRATIVE: CASE EVENT DATE: 20180212
